FAERS Safety Report 19661211 (Version 1)
Quarter: 2021Q3

REPORT INFORMATION
  Report Type: Spontaneous
  Country: CH (occurrence: CH)
  Receive Date: 20210805
  Receipt Date: 20210805
  Transmission Date: 20211014
  Serious: Yes (Hospitalization, Other)
  Sender: FDA-Public Use
  Company Number: CH-PFIZER INC-202100960726

PATIENT
  Age: 86 Year
  Sex: Female

DRUGS (23)
  1. TEBOKAN [Concomitant]
     Active Substance: GINKGO
     Dosage: UNK
     Dates: end: 20210529
  2. COSOPT [Concomitant]
     Active Substance: DORZOLAMIDE HYDROCHLORIDE\TIMOLOL MALEATE
     Indication: GLAUCOMA
     Dosage: UNK
  3. OXYNORM [Concomitant]
     Active Substance: OXYCODONE HYDROCHLORIDE
     Indication: BACK PAIN
     Dosage: UNK
     Dates: start: 20210608
  4. SORTIS [Suspect]
     Active Substance: ATORVASTATIN
     Indication: PROPHYLAXIS
     Dosage: 20 MG, 1X/DAY (1 TABLET IN THE EVENING)
     Dates: start: 2014
  5. VASCORD HCT [Suspect]
     Active Substance: AMLODIPINE BESYLATE\HYDROCHLOROTHIAZIDE\OLMESARTAN MEDOXOMIL
     Indication: HYPERTENSION
     Dosage: 1 DF, 1X/DAY
     Dates: start: 20210531
  6. DAFALGAN [Suspect]
     Active Substance: ACETAMINOPHEN
     Dosage: AS NEEDED
     Dates: start: 20210530
  7. ASPIRIN CARDIO [Suspect]
     Active Substance: ASPIRIN
     Indication: PROPHYLAXIS
     Dosage: 100 MG, 1X/DAY (1 TABLET IN THE MORNING)
     Dates: start: 2014
  8. CLEXANE [Concomitant]
     Active Substance: ENOXAPARIN SODIUM
     Indication: PROPHYLAXIS
     Dosage: UNK
     Dates: start: 20210530
  9. FUROSEMIDE. [Concomitant]
     Active Substance: FUROSEMIDE
     Indication: CARDIAC FAILURE
     Dosage: UNK
     Dates: start: 20210530, end: 20210530
  10. FORTALIS BALSAM [Concomitant]
     Indication: BACK PAIN
     Dosage: UNK
     Dates: start: 20210607
  11. MALTOFER [FERRIC HYDROXIDE POLYMALTOSE COMPLEX] [Suspect]
     Active Substance: IRON POLYMALTOSE
     Indication: IRON DEFICIENCY
     Dosage: 100 MG, 1X/DAY
     Dates: start: 20210601, end: 20210610
  12. RHEUMON [Concomitant]
     Indication: BACK PAIN
     Dosage: UNK
     Dates: end: 20210529
  13. ACIDUM FOLICUM [Concomitant]
     Active Substance: FOLIC ACID
     Indication: FOLATE DEFICIENCY
     Dosage: UNK
     Dates: start: 20210607
  14. VITAMIN B12 [VITAMIN B12 NOS] [Concomitant]
     Active Substance: CYANOCOBALAMIN
     Indication: VITAMIN B12 DEFICIENCY
     Dosage: UNK
     Dates: start: 20210607
  15. NEXIUM MUPS [ESOMEPRAZOLE SODIUM] [Suspect]
     Active Substance: ESOMEPRAZOLE SODIUM
     Dosage: 40 MG, 1X/DAY (1 TAB IN THE MORNING)
     Dates: end: 20210511
  16. CALCIMAGON?D3 [Suspect]
     Active Substance: CALCIUM\CHOLECALCIFEROL
     Indication: OSTEOPOROSIS
     Dosage: 1 DF, 1X/DAY (1 TABLET AT NOON)
     Dates: start: 2017
  17. METAMUCIL [Concomitant]
     Active Substance: PLANTAGO SEED
     Dosage: AS NEEDED (IN PROGRESS IF NO BOWEL MOVEMENT FOR 1 DAY)
     Dates: start: 20210607
  18. MORPHINE [Concomitant]
     Active Substance: MORPHINE
     Indication: BACK PAIN
     Dosage: UNK
     Dates: start: 20210531, end: 20210608
  19. BETALOC ZOK [Suspect]
     Active Substance: METOPROLOL SUCCINATE
     Indication: HYPERTENSION
     Dosage: 100 MG, 1X/DAY
  20. DAFALGAN [Suspect]
     Active Substance: ACETAMINOPHEN
     Indication: PAIN
     Dosage: 1 G, 3X/DAY
     Dates: start: 20210530
  21. CIPRALEX [Suspect]
     Active Substance: ESCITALOPRAM OXALATE
     Indication: DEPRESSION
     Dosage: 10 MG, 1X/DAY (1 TABLET IN THE MORNING)
     Dates: start: 2014
  22. PURSANA [Suspect]
     Active Substance: FIG FRUIT OIL\SORBITOL
     Dosage: 15 ML, AS NEEDED
     Dates: start: 20210603
  23. CIPROFLOXACINE [CIPROFLOXACIN] [Concomitant]
     Active Substance: CIPROFLOXACIN
     Indication: URINARY TRACT INFECTION
     Dosage: UNK
     Dates: start: 20210610, end: 20210617

REACTIONS (7)
  - Pyrexia [Unknown]
  - Cardiac failure [Unknown]
  - Diverticulum intestinal [Unknown]
  - Back pain [Unknown]
  - Diarrhoea [Not Recovered/Not Resolved]
  - Occult blood positive [Unknown]
  - Diarrhoea [Not Recovered/Not Resolved]

NARRATIVE: CASE EVENT DATE: 202005
